FAERS Safety Report 8907783 (Version 2)
Quarter: 2013Q1

REPORT INFORMATION
  Report Type: Report from Study
  Country: JP (occurrence: JP)
  Receive Date: 20121114
  Receipt Date: 20130318
  Transmission Date: 20140127
  Serious: Yes (Other)
  Sender: FDA-Public Use
  Company Number: JP-009507513-2011SP030850

PATIENT
  Age: 73 Year
  Sex: Male
  Weight: 58 kg

DRUGS (12)
  1. REBETOL CAPSULES 200MG [Suspect]
     Indication: CHRONIC HEPATITIS C
     Dosage: 200 MG AM 400 MG PM
     Route: 048
     Dates: start: 20100601, end: 20100628
  2. REBETOL CAPSULES 200MG [Suspect]
     Dosage: 200 MG, BID
     Route: 048
     Dates: start: 20100629, end: 20101018
  3. REBETOL CAPSULES 200MG [Suspect]
     Dosage: 200 MG, QD
     Route: 048
     Dates: start: 20101019, end: 20110221
  4. FERON [Suspect]
     Indication: CHRONIC HEPATITIS C
     Dosage: 6 MILLION-BILLION UNIT , QD
     Route: 041
     Dates: start: 20100601, end: 20100628
  5. FERON [Suspect]
     Dosage: 6 MILLION BILLION UNIT, TIW
     Route: 042
     Dates: start: 20100629, end: 20111021
  6. ACTOS [Concomitant]
     Indication: DIABETES MELLITUS
     Dosage: 15 MG, QD
     Route: 048
     Dates: start: 20080627
  7. ACTOS [Concomitant]
     Dosage: 30 MG, QD, THE DIVIDED DOSE FREQUENCY IS UNCERTIAN
     Route: 048
  8. LOCHOL (FLUVASTATIN SODIUM) [Concomitant]
     Indication: HYPERLIPIDAEMIA
     Dosage: 20 MG, QD
     Route: 048
     Dates: start: 20100518, end: 20111101
  9. OMEPRAL [Concomitant]
     Indication: GASTROOESOPHAGEAL REFLUX DISEASE
     Dosage: 20 MG, QD
     Route: 048
     Dates: start: 20110601, end: 20111101
  10. PROMAC (POLAPREZINC) [Concomitant]
     Indication: DYSGEUSIA
     Dosage: 150 MG, QD
     Route: 048
     Dates: start: 20101019, end: 20111101
  11. LOXONIN [Concomitant]
     Indication: PROPHYLAXIS
     Dosage: 60 MG, TIW
     Route: 048
     Dates: start: 20100601
  12. LOXONIN [Concomitant]
     Dosage: , DIVIDED DOSE FREQUENCY IS UNCERTAIN60 MG, QD
     Route: 048
     Dates: end: 20111101

REACTIONS (13)
  - White blood cell count decreased [Recovering/Resolving]
  - Platelet count decreased [Recovered/Resolved]
  - Red blood cell count decreased [Recovering/Resolving]
  - Proteinuria [Recovered/Resolved]
  - Blood urea increased [Recovered/Resolved]
  - Blood lactate dehydrogenase increased [Recovering/Resolving]
  - Blood glucose increased [Recovered/Resolved]
  - Blood albumin decreased [Recovered/Resolved]
  - Osteoporosis [Recovering/Resolving]
  - Protein total decreased [Recovered/Resolved]
  - Haemoglobin decreased [Recovering/Resolving]
  - Proteinuria [Recovered/Resolved]
  - Hyperglycaemia [Recovered/Resolved]
